FAERS Safety Report 10363925 (Version 1)
Quarter: 2014Q3

REPORT INFORMATION
  Report Type: Spontaneous
  Country: CA (occurrence: None)
  Receive Date: 20140801
  Receipt Date: 20140801
  Transmission Date: 20150326
  Serious: Yes (Hospitalization)
  Sender: FDA-Public Use
  Company Number: CA-016547

PATIENT
  Age: 88 Year
  Sex: Male

DRUGS (2)
  1. FIRMAGON [Suspect]
     Active Substance: DEGARELIX ACETATE
     Indication: PROSTATE CANCER
     Route: 058
     Dates: start: 20111020
  2. ADVIL [Concomitant]
     Active Substance: IBUPROFEN

REACTIONS (6)
  - Blood pressure fluctuation [None]
  - Decreased appetite [None]
  - Mobility decreased [None]
  - Dizziness [None]
  - Bradycardia [None]
  - Urinary tract infection [None]

NARRATIVE: CASE EVENT DATE: 20140719
